FAERS Safety Report 24072126 (Version 2)
Quarter: 2024Q3

REPORT INFORMATION
  Report Type: Spontaneous
  Country: BR (occurrence: BR)
  Receive Date: 20240710
  Receipt Date: 20240729
  Transmission Date: 20241016
  Serious: Yes (Other)
  Sender: TEVA
  Company Number: BR-TEVA-VS-3216961

PATIENT
  Age: 48 Year
  Sex: Female

DRUGS (1)
  1. METHOTREXATE [Suspect]
     Active Substance: METHOTREXATE
     Indication: Arthropathy
     Dosage: 10-20 MG/WEEK
     Route: 065
     Dates: start: 202008, end: 202107

REACTIONS (1)
  - Pulmonary paracoccidioidomycosis [Recovered/Resolved]
